FAERS Safety Report 22390557 (Version 1)
Quarter: 2023Q2

REPORT INFORMATION
  Report Type: Spontaneous
  Country: CN (occurrence: CN)
  Receive Date: 20230531
  Receipt Date: 20230531
  Transmission Date: 20230722
  Serious: Yes (Hospitalization, Other)
  Sender: FDA-Public Use
  Company Number: CN-BoehringerIngelheim-2023-BI-239759

PATIENT
  Age: 72 Year
  Sex: Female
  Weight: 38 kg

DRUGS (2)
  1. ALTEPLASE [Suspect]
     Active Substance: ALTEPLASE
     Indication: Cerebral infarction
     Dosage: AT 1101 HOURS CONTINUOUS MICROPUMP INJECTION
     Route: 042
     Dates: start: 20230518, end: 20230518
  2. ALTEPLASE [Suspect]
     Active Substance: ALTEPLASE
     Dosage: FORM 1101 HOURS TO 1200 HOURS
     Route: 042
     Dates: start: 20230518, end: 20230518

REACTIONS (5)
  - Coma [Not Recovered/Not Resolved]
  - Cerebral haemorrhage [Not Recovered/Not Resolved]
  - Brain herniation [Not Recovered/Not Resolved]
  - Confusional state [Not Recovered/Not Resolved]
  - Hyperhidrosis [Not Recovered/Not Resolved]

NARRATIVE: CASE EVENT DATE: 20230518
